FAERS Safety Report 19399479 (Version 1)
Quarter: 2021Q2

REPORT INFORMATION
  Report Type: Spontaneous
  Country: IN (occurrence: IN)
  Receive Date: 20210610
  Receipt Date: 20210610
  Transmission Date: 20210717
  Serious: Yes (Other)
  Sender: FDA-Public Use
  Company Number: IN-MYLANLABS-2021M1033610

PATIENT
  Age: 57 Year
  Sex: Male

DRUGS (14)
  1. CEFTRIAXONE. [Concomitant]
     Active Substance: CEFTRIAXONE
     Indication: ANTIBIOTIC THERAPY
  2. CYCLOSPORINE. [Suspect]
     Active Substance: CYCLOSPORINE
     Indication: IMMUNOSUPPRESSANT DRUG THERAPY
     Dosage: MICROEMULSIFIED
     Route: 048
  3. AMPHOTERICIN?B [Concomitant]
     Active Substance: AMPHOTERICIN B
     Indication: MUCORMYCOSIS
     Dosage: 5 MILLIGRAM/KILOGRAM, QD
     Route: 065
  4. MYCOPHENOLATE MOFETIL. [Suspect]
     Active Substance: MYCOPHENOLATE MOFETIL
     Indication: IMMUNOSUPPRESSANT DRUG THERAPY
     Dosage: UNK
     Route: 065
  5. SULBACTAM [Concomitant]
     Active Substance: SULBACTAM
     Indication: ANTIBIOTIC THERAPY
  6. COLISTIN [Concomitant]
     Active Substance: COLISTIN
     Indication: ANTIBIOTIC THERAPY
  7. EVEROLIMUS. [Suspect]
     Active Substance: EVEROLIMUS
     Indication: IMMUNOSUPPRESSANT DRUG THERAPY
     Dosage: UNK
     Route: 065
  8. CEFTRIAXONE. [Concomitant]
     Active Substance: CEFTRIAXONE
     Indication: EVIDENCE BASED TREATMENT
     Dosage: UNK
     Route: 065
  9. FLUCONAZOLE. [Concomitant]
     Active Substance: FLUCONAZOLE
     Indication: PROPHYLAXIS
     Dosage: UNK
     Route: 065
  10. TACROLIMUS. [Suspect]
     Active Substance: TACROLIMUS
     Indication: IMMUNOSUPPRESSANT DRUG THERAPY
     Dosage: MEAN TACROLIMUS LEVEL 6NG/ML IN THE FIRST 2 WEEKS
     Route: 065
  11. POSACONAZOLE [Suspect]
     Active Substance: POSACONAZOLE
     Indication: MUCORMYCOSIS
     Dosage: 200 MILLIGRAM, TID [THREE TIMES A DAY (5ML)]
     Route: 048
  12. SULBACTAM [Concomitant]
     Active Substance: SULBACTAM
     Indication: EVIDENCE BASED TREATMENT
     Dosage: UNK
     Route: 065
  13. COLISTIN [Concomitant]
     Active Substance: COLISTIN
     Indication: EVIDENCE BASED TREATMENT
     Dosage: UNK
     Route: 065
  14. INSULIN [Concomitant]
     Active Substance: INSULIN NOS
     Indication: TYPE 2 DIABETES MELLITUS
     Dosage: UNK
     Route: 065

REACTIONS (8)
  - Neurotoxicity [Unknown]
  - Hepatic infection fungal [Recovered/Resolved]
  - Acne [Recovering/Resolving]
  - Nephropathy toxic [Unknown]
  - Complications of transplanted liver [Recovered/Resolved]
  - Mucormycosis [Recovered/Resolved]
  - Rash [Recovering/Resolving]
  - Gastrointestinal disorder [Recovering/Resolving]
